FAERS Safety Report 8016064-2 (Version None)
Quarter: 2011Q4

REPORT INFORMATION
  Report Type: 
  Country: None (occurrence: None)
  Receive Date: 20111230
  Receipt Date: 20111226
  Transmission Date: 20120403
  Serious: Yes (Life-Threatening, Other)
  Sender: FDA-Public Use
  Company Number: JP-ABBOTT-11P-087-0886361-00

PATIENT
  Sex: Male
  Weight: 37 kg

DRUGS (8)
  1. SEVOFLURANE [Suspect]
     Indication: GENERAL ANAESTHESIA
     Route: 055
     Dates: start: 20110420, end: 20110420
  2. DIAZEPAM [Suspect]
     Indication: ANAESTHETIC PREMEDICATION
     Route: 048
     Dates: start: 20110420, end: 20110420
  3. ULTIVA [Suspect]
     Indication: GENERAL ANAESTHESIA
     Route: 042
     Dates: start: 20110420, end: 20110420
  4. FENTANYL [Suspect]
     Indication: GENERAL ANAESTHESIA
     Dosage: 100MCG + 50MCG + 25MCG
     Route: 042
     Dates: start: 20110420, end: 20110420
  5. NITROUS OXIDE [Suspect]
     Indication: INDUCTION OF ANAESTHESIA
     Route: 055
     Dates: start: 20110420, end: 20110420
  6. ROCURONIUM BROMIDE [Concomitant]
     Indication: MUSCLE RELAXANT THERAPY
     Route: 042
     Dates: start: 20110420, end: 20110420
  7. ROCURONIUM BROMIDE [Concomitant]
     Indication: ENDOTRACHEAL INTUBATION
  8. CEFAZOLIN SODIUM [Concomitant]
     Indication: INFECTION PROPHYLAXIS
     Route: 042
     Dates: start: 20110420, end: 20110422

REACTIONS (4)
  - ATRIAL FLUTTER [None]
  - HEART RATE DECREASED [None]
  - SINUS ARREST [None]
  - NODAL RHYTHM [None]
